FAERS Safety Report 11409046 (Version 2)
Quarter: 2015Q3

REPORT INFORMATION
  Report Type: Spontaneous
  Country: US (occurrence: US)
  Receive Date: 20150824
  Receipt Date: 20150909
  Transmission Date: 20151125
  Serious: Yes (Other)
  Sender: FDA-Public Use
  Company Number: US-009507513-1508USA007497

PATIENT
  Age: 83 Year
  Sex: Female

DRUGS (3)
  1. ASMANEX [Suspect]
     Active Substance: MOMETASONE FUROATE
     Indication: DYSPNOEA EXERTIONAL
  2. ASMANEX [Suspect]
     Active Substance: MOMETASONE FUROATE
     Indication: CARDIAC DISORDER
  3. ASMANEX [Suspect]
     Active Substance: MOMETASONE FUROATE
     Indication: WHEEZING
     Dosage: ONE PUFF IN THE MORNING, ONE PUFF IN THE EVENING
     Route: 055
     Dates: start: 20150805, end: 20150817

REACTIONS (6)
  - Foot fracture [Not Recovered/Not Resolved]
  - Throat irritation [Not Recovered/Not Resolved]
  - Product use issue [Unknown]
  - Aphonia [Not Recovered/Not Resolved]
  - Dyspnoea [Not Recovered/Not Resolved]
  - Dyspepsia [Not Recovered/Not Resolved]

NARRATIVE: CASE EVENT DATE: 201508
